FAERS Safety Report 4474596-8 (Version None)
Quarter: 2004Q4

REPORT INFORMATION
  Report Type: 
  Country: None (occurrence: None)
  Receive Date: 20041012
  Receipt Date: 20040924
  Transmission Date: 20050328
  Serious: Yes (Death)
  Sender: FDA-Public Use
  Company Number: 2004-DE-04970DE

PATIENT
  Age: 58 Year
  Sex: Male

DRUGS (3)
  1. SIFROL (PRAMIPEXOLE DIHYDROCHLORIDE) (TA)  (PRAMIPEXOLE) [Suspect]
     Indication: PARKINSON'S DISEASE
     Dosage: 0.7 MG 3 X 1 1/2 (0.7 MG) PO
     Route: 048
  2. COMTESS (ENTACAPONE) [Concomitant]
  3. MADOPAR (MADOPAR) [Concomitant]

REACTIONS (5)
  - APNOEA [None]
  - ARRHYTHMIA [None]
  - FREEZING PHENOMENON [None]
  - PULMONARY EMBOLISM [None]
  - SUDDEN CARDIAC DEATH [None]
